FAERS Safety Report 9168145 (Version 1)
Quarter: 2013Q1

REPORT INFORMATION
  Report Type: Spontaneous
  Country: GB (occurrence: None)
  Receive Date: 20130307
  Receipt Date: 20130307
  Transmission Date: 20140127
  Serious: Yes (Other)
  Sender: FDA-Public Use
  Company Number: KAD201302-000284

PATIENT
  Age: 27 Year
  Sex: Male
  Weight: 68 kg

DRUGS (5)
  1. RIBAVIRIN (RIBAVIRIN) [Suspect]
     Indication: PRODUCT USED FOR UNKNOWN INDICATION
     Route: 048
     Dates: start: 20130201
  2. INCIVO (TELAPREVIR) [Suspect]
     Indication: CHRONIC HEPATITIS C
     Route: 048
     Dates: start: 20130104
  3. PEGINTERFERON ALFA-2B (PEGINTERFERON ALFA-AB) [Concomitant]
  4. E45 ITCH RELIEF (LAUROMACROGOLS SOYA OIL UREA) [Concomitant]
  5. SUBUTEX (BUPRENORPHINE HYDROCHLORIDE) [Concomitant]

REACTIONS (8)
  - Nausea [None]
  - Vomiting [None]
  - Diarrhoea [None]
  - Anaemia [None]
  - Haemorrhoids [None]
  - Rash [None]
  - Scab [None]
  - Anal pruritus [None]
